FAERS Safety Report 19008000 (Version 1)
Quarter: 2021Q1

REPORT INFORMATION
  Report Type: Spontaneous
  Country: CA (occurrence: CA)
  Receive Date: 20210315
  Receipt Date: 20210315
  Transmission Date: 20210420
  Serious: Yes (Hospitalization)
  Sender: FDA-Public Use
  Company Number: CA-JNJFOC-20210319560

PATIENT
  Age: 38 Year
  Sex: Female

DRUGS (1)
  1. INVOKAMET [Suspect]
     Active Substance: CANAGLIFLOZIN\METFORMIN HYDROCHLORIDE
     Indication: PRODUCT USED FOR UNKNOWN INDICATION
     Route: 048

REACTIONS (5)
  - Escherichia bacteraemia [Unknown]
  - Stent placement [Unknown]
  - Urinary tract infection [Unknown]
  - Euglycaemic diabetic ketoacidosis [Unknown]
  - Pyelonephritis [Unknown]
